FAERS Safety Report 10277535 (Version 3)
Quarter: 2014Q3

REPORT INFORMATION
  Report Type: Spontaneous
  Country: US (occurrence: US)
  Receive Date: 20140703
  Receipt Date: 20140924
  Transmission Date: 20150326
  Serious: Yes (Hospitalization)
  Sender: FDA-Public Use
  Company Number: US-GLAXOSMITHKLINE-A1056258A

PATIENT
  Age: 65 Year
  Sex: Male

DRUGS (1)
  1. VOTRIENT [Suspect]
     Active Substance: PAZOPANIB HYDROCHLORIDE
     Indication: RENAL CELL CARCINOMA
     Dosage: 800MG PER DAY
     Route: 065
     Dates: start: 20130411, end: 2014

REACTIONS (10)
  - Drug dose omission [Unknown]
  - Bradyphrenia [Recovered/Resolved]
  - Insomnia [Unknown]
  - Fatigue [Not Recovered/Not Resolved]
  - Dysgraphia [Unknown]
  - Memory impairment [Unknown]
  - Diarrhoea [Unknown]
  - Thinking abnormal [Recovered/Resolved]
  - Sensory disturbance [Unknown]
  - Disorientation [Recovered/Resolved]

NARRATIVE: CASE EVENT DATE: 201311
